FAERS Safety Report 5248094-8 (Version None)
Quarter: 2007Q1

REPORT INFORMATION
  Report Type: 
  Country: None (occurrence: None)
  Receive Date: 20070227
  Receipt Date: 20070226
  Transmission Date: 20070707
  Serious: Yes (Other)
  Sender: FDA-Public Use
  Company Number: US-GLAXOSMITHKLINE-A0640986A

PATIENT
  Age: 10 Year
  Sex: Male

DRUGS (7)
  1. AVANDIA [Suspect]
     Indication: DRUG DISPENSING ERROR
     Dosage: 4MG PER DAY
     Route: 048
     Dates: start: 20061212
  2. CONCERTA [Concomitant]
  3. PERIACTIN [Concomitant]
  4. DETROL LA [Concomitant]
  5. LORATADINE [Concomitant]
  6. ENALAPRIL MALEATE [Concomitant]
  7. DDAVP (NEEDS NO REFRIGERATION) [Concomitant]

REACTIONS (11)
  - ANAEMIA [None]
  - BLOOD GLUCOSE DECREASED [None]
  - BLOOD INSULIN INCREASED [None]
  - DRUG DISPENSING ERROR [None]
  - HAEMATOCRIT DECREASED [None]
  - HUNGER [None]
  - HYPERHIDROSIS [None]
  - IRRITABILITY [None]
  - RED BLOOD CELL COUNT DECREASED [None]
  - VISUAL ACUITY REDUCED [None]
  - WRONG DRUG ADMINISTERED [None]
